FAERS Safety Report 5505879-8 (Version None)
Quarter: 2007Q4

REPORT INFORMATION
  Report Type: 
  Country: None (occurrence: None)
  Receive Date: 20071102
  Receipt Date: 20071023
  Transmission Date: 20080405
  Serious: Yes (Other)
  Sender: FDA-Public Use
  Company Number: AT-PFIZER INC-2007089970

PATIENT
  Sex: Male
  Weight: 101 kg

DRUGS (2)
  1. SUTENT [Suspect]
     Indication: METASTATIC RENAL CELL CARCINOMA
     Route: 048
     Dates: start: 20071017, end: 20071017
  2. DEFLAMAT [Concomitant]

REACTIONS (1)
  - HYPERSENSITIVITY [None]
